FAERS Safety Report 24365423 (Version 1)
Quarter: 2024Q3

REPORT INFORMATION
  Report Type: Report from Study
  Country: CA (occurrence: CA)
  Receive Date: 20240926
  Receipt Date: 20240926
  Transmission Date: 20241016
  Serious: Yes (Other)
  Sender: BIOCON
  Company Number: CA-BIOCON BIOLOGICS LIMITED-BBL2024006966

PATIENT

DRUGS (2)
  1. HULIO [Suspect]
     Active Substance: ADALIMUMAB-FKJP
     Indication: Behcet^s syndrome
     Dosage: 40 MILLIGRAM,1 EVERY 2 WEEKS (SOLUTION)
     Route: 058
  2. HULIO [Suspect]
     Active Substance: ADALIMUMAB-FKJP
     Dosage: 40 MILLIGRAM,1 EVERY 2 WEEKS (SOLUTION)
     Route: 058

REACTIONS (3)
  - Behcet^s syndrome [Unknown]
  - Illness [Unknown]
  - Off label use [Unknown]
